FAERS Safety Report 7303051-2 (Version None)
Quarter: 2011Q1

REPORT INFORMATION
  Report Type: 
  Country: None (occurrence: None)
  Receive Date: 20110221
  Receipt Date: 20110211
  Transmission Date: 20110831
  Serious: Yes (Hospitalization, Other)
  Sender: FDA-Public Use
  Company Number: US-BIOGENIDEC-2010BI043836

PATIENT
  Sex: Female

DRUGS (8)
  1. REFRESH [Concomitant]
  2. MEDICATIONS [Concomitant]
  3. AVONEX [Suspect]
     Route: 030
     Dates: start: 20070307, end: 20071107
  4. LEXAPRO [Concomitant]
  5. TYLOX [Concomitant]
  6. AVONEX [Suspect]
     Indication: MULTIPLE SCLEROSIS
     Route: 030
     Dates: start: 19981116, end: 20061101
  7. AVONEX [Suspect]
     Route: 030
     Dates: start: 20080227
  8. REFRESH [Concomitant]

REACTIONS (2)
  - CEREBRAL THROMBOSIS [None]
  - ANEURYSM [None]
